FAERS Safety Report 4751284-1 (Version None)
Quarter: 2005Q3

REPORT INFORMATION
  Report Type: 
  Country: None (occurrence: None)
  Receive Date: 20050822
  Receipt Date: 20050804
  Transmission Date: 20060218
  Serious: Yes (Other)
  Sender: FDA-Public Use
  Company Number: 2005BL004324

PATIENT
  Age: 34 Year
  Sex: Female
  Weight: 68.0396 kg

DRUGS (5)
  1. NEOMYCIN AND POLYMYXIN B SULFATES AND HYDROCORTISONE OTIC SUSPENSION U [Suspect]
     Indication: EAR INFECTION
     Dosage: 3 + 6 + 16 DROPS; 3 TIMES A DAY; TOPICAL
     Route: 061
     Dates: start: 20020508, end: 20020601
  2. NEOMYCIN AND POLYMYXIN B SULFATES AND HYDROCORTISONE OTIC SUSPENSION U [Suspect]
     Indication: EAR INFECTION
     Dosage: 3 + 6 + 16 DROPS; 3 TIMES A DAY; TOPICAL
     Route: 061
     Dates: start: 20020602, end: 20020730
  3. NEOMYCIN AND POLYMYXIN B SULFATES AND HYDROCORTISONE OTIC SUSPENSION U [Suspect]
     Indication: EAR INFECTION
     Dosage: 3 + 6 + 16 DROPS; 3 TIMES A DAY; TOPICAL
     Route: 061
     Dates: start: 20020731, end: 20020803
  4. NEOMYCIN AND POLYMYXIN B SULFATES AND HYDROCORTISONE OTIC SUSPENSION U [Suspect]
  5. FLOXIN OTIC [Suspect]
     Indication: OTITIS EXTERNA
     Dosage: 6 DROP; 3 TIMES A DAY; TOPICAL
     Route: 061
     Dates: start: 20020425, end: 20020508

REACTIONS (20)
  - AURICULAR SWELLING [None]
  - CONDITION AGGRAVATED [None]
  - DEAFNESS UNILATERAL [None]
  - DRUG INTERACTION [None]
  - EAR DISCOMFORT [None]
  - EAR DISORDER [None]
  - EAR INFECTION [None]
  - EAR PAIN [None]
  - EAR PRURITUS [None]
  - FACIAL PALSY [None]
  - GRAFT COMPLICATION [None]
  - HEARING IMPAIRED [None]
  - INAPPROPRIATE SCHEDULE OF DRUG ADMINISTRATION [None]
  - MASTOIDITIS [None]
  - MYRINGOPLASTY [None]
  - OTITIS EXTERNA [None]
  - OTOTOXICITY [None]
  - TINNITUS [None]
  - TYMPANIC MEMBRANE PERFORATION [None]
  - VERTIGO [None]
